FAERS Safety Report 8470539-0 (Version None)
Quarter: 2012Q2

REPORT INFORMATION
  Report Type: 
  Country: None (occurrence: None)
  Receive Date: 20120627
  Receipt Date: 20120613
  Transmission Date: 20120825
  Serious: Yes (Death, Hospitalization)
  Sender: FDA-Public Use
  Company Number: US-RANBAXY-2011US-45764

PATIENT
  Age: 35 Year
  Sex: Female

DRUGS (9)
  1. OLANZAPINE [Suspect]
     Indication: AGITATION
     Dosage: 20 MG, BID
     Route: 048
  2. RISPERIDONE [Suspect]
     Dosage: 4 MG, BID
     Route: 048
  3. BENZTROPINE MESYLATE [Suspect]
     Indication: EXTRAPYRAMIDAL DISORDER
     Dosage: 1MG TID
     Route: 048
  4. HALOPERIDOL [Suspect]
     Indication: AGITATION
     Dosage: 5 MG, PRN
     Route: 048
  5. VALPROIC ACID [Concomitant]
     Indication: AGITATION
     Route: 048
  6. LITHIUM CARBONATE [Concomitant]
     Indication: PRODUCT USED FOR UNKNOWN INDICATION
     Dosage: 600 MG, BID
     Route: 065
  7. RISPERIDONE [Suspect]
     Indication: AGITATION
     Dosage: 4 MG, TID
     Route: 048
  8. PERPHENAZINE [Suspect]
     Indication: AGITATION
     Dosage: 16 MG, TID
     Route: 048
  9. BENZTROPINE MESYLATE [Suspect]
     Dosage: 0.5 MG, BID
     Route: 048

REACTIONS (1)
  - ILEUS PARALYTIC [None]
